FAERS Safety Report 24399471 (Version 2)
Quarter: 2024Q4

REPORT INFORMATION
  Report Type: Report from Study
  Country: US (occurrence: US)
  Receive Date: 20241005
  Receipt Date: 20241008
  Transmission Date: 20250114
  Serious: Yes (Hospitalization)
  Sender: ABBVIE
  Company Number: US-ABBVIE-5946642

PATIENT
  Age: 43 Year
  Sex: Male
  Weight: 77.11 kg

DRUGS (1)
  1. CREON [Suspect]
     Active Substance: PANCRELIPASE AMYLASE\PANCRELIPASE LIPASE\PANCRELIPASE PROTEASE
     Indication: Pancreatic failure
     Dosage: FORM STRENGTH: 32000 UNIT?FREQUENCY TEXT: 1 CAPSULE PER MEAL AND SNACKS
     Route: 048
     Dates: start: 20230621, end: 20240929

REACTIONS (6)
  - Toe amputation [Recovering/Resolving]
  - Osteomyelitis [Unknown]
  - Localised infection [Recovering/Resolving]
  - Steatorrhoea [Not Recovered/Not Resolved]
  - Peripheral swelling [Recovered/Resolved]
  - Inflammation [Unknown]

NARRATIVE: CASE EVENT DATE: 20240701
